FAERS Safety Report 9217816 (Version 2)
Quarter: 2013Q4

REPORT INFORMATION
  Report Type: Spontaneous
  Country: GB (occurrence: GB)
  Receive Date: 20130408
  Receipt Date: 20131111
  Transmission Date: 20140711
  Serious: Yes (Life-Threatening, Hospitalization, Disabling, Other)
  Sender: FDA-Public Use
  Company Number: GB-ASTRAZENECA-2013SE21741

PATIENT
  Age: 78 Year
  Sex: Male
  Weight: 73 kg

DRUGS (8)
  1. ROSUVASTATIN CALCIUM [Suspect]
     Indication: STENT PLACEMENT
     Route: 048
     Dates: start: 20110830, end: 20130110
  2. ASPIRIN [Concomitant]
  3. GLUCOSAMINE [Concomitant]
  4. MULTIVITAMIN [Concomitant]
  5. OMEGA-3 ACIDS [Concomitant]
  6. OMEPRAZOLE [Concomitant]
  7. RAMIPRIL [Concomitant]
  8. SAW PALMETTO [Concomitant]

REACTIONS (9)
  - Gastrooesophageal reflux disease [Recovered/Resolved]
  - Choking [Recovering/Resolving]
  - Hernia [Unknown]
  - Dysphagia [Unknown]
  - Myalgia [Unknown]
  - Muscular weakness [Recovered/Resolved with Sequelae]
  - Pain in extremity [Unknown]
  - Blood cholesterol increased [Unknown]
  - Therapy cessation [Unknown]
